FAERS Safety Report 6213288-1 (Version None)
Quarter: 2009Q2

REPORT INFORMATION
  Report Type: 
  Country: None (occurrence: None)
  Receive Date: 20090602
  Receipt Date: 20090602
  Transmission Date: 20091009
  Serious: Yes (Hospitalization)
  Sender: FDA-Public Use
  Company Number: None

PATIENT
  Age: 40 Year
  Sex: Female
  Weight: 89.3586 kg

DRUGS (1)
  1. BEVACIZUMAB 400MG, 100MG VIALS GENENTECH [Suspect]
     Indication: BREAST CANCER METASTATIC
     Dosage: 900MG EVERY 2 WEEKS IV DRIP
     Route: 041
     Dates: start: 20090205, end: 20090515

REACTIONS (6)
  - BLOOD PRESSURE INCREASED [None]
  - GAIT DISTURBANCE [None]
  - HEADACHE [None]
  - HYPERHIDROSIS [None]
  - SPEECH DISORDER [None]
  - VISUAL IMPAIRMENT [None]
